FAERS Safety Report 5914378-0 (Version None)
Quarter: 2008Q4

REPORT INFORMATION
  Report Type: 
  Country: None (occurrence: None)
  Receive Date: 20081007
  Receipt Date: 20080930
  Transmission Date: 20090506
  Serious: Yes (Other)
  Sender: FDA-Public Use
  Company Number: 034576

PATIENT
  Age: 31 Year
  Sex: Male

DRUGS (2)
  1. ADDERALL 10 [Suspect]
     Dosage: ORAL
     Route: 048
  2. CELEXA [Suspect]

REACTIONS (4)
  - GRANULOCYTOPENIA [None]
  - LYMPHOCYTE MORPHOLOGY ABNORMAL [None]
  - MONOCYTE COUNT INCREASED [None]
  - SHIFT TO THE LEFT [None]
